FAERS Safety Report 20435857 (Version 3)
Quarter: 2022Q1

REPORT INFORMATION
  Report Type: Report from Study
  Country: CA (occurrence: CA)
  Receive Date: 20220207
  Receipt Date: 20220314
  Transmission Date: 20220424
  Serious: Yes (Hospitalization, Other)
  Sender: FDA-Public Use
  Company Number: CA-JNJFOC-20220112802

PATIENT
  Age: 44 Year
  Sex: Female
  Weight: 52 kg

DRUGS (5)
  1. REMICADE [Suspect]
     Active Substance: INFLIXIMAB
     Indication: Crohn^s disease
     Dosage: PATIENT RECEIVED REMICADE INFUSION ON NOV-16-2021?PATIENT RECEIVED REMICADE INFUSION ON 07-JAN-2022
     Route: 042
     Dates: start: 20211007
  2. REMICADE [Suspect]
     Active Substance: INFLIXIMAB
     Dosage: DOSE:10 MG/KG STAT DOSE ON 19-JAN-2022
     Route: 042
  3. REMICADE [Suspect]
     Active Substance: INFLIXIMAB
     Dosage: NEXT INFUSION DUE ON 17-MAR-2022
     Route: 042
     Dates: start: 20220119
  4. REMICADE [Suspect]
     Active Substance: INFLIXIMAB
     Dosage: GIVEN ON 15-FEB-2022 AND 22-FEB-2022
     Route: 042
     Dates: start: 20220215
  5. REMICADE [Suspect]
     Active Substance: INFLIXIMAB
     Route: 042
     Dates: start: 2022

REACTIONS (6)
  - Clostridium difficile infection [Recovering/Resolving]
  - Crohn^s disease [Not Recovered/Not Resolved]
  - Burning sensation [Unknown]
  - Weight decreased [Unknown]
  - Off label use [Unknown]
  - Product use issue [Unknown]

NARRATIVE: CASE EVENT DATE: 20220101
